FAERS Safety Report 23908115 (Version 1)
Quarter: 2024Q2

REPORT INFORMATION
  Report Type: Spontaneous
  Country: US (occurrence: None)
  Receive Date: 20240524
  Receipt Date: 20240524
  Transmission Date: 20240717
  Serious: Yes (Hospitalization)
  Sender: FDA-Public Use
  Company Number: None

PATIENT
  Age: 37 Year
  Sex: Female

DRUGS (3)
  1. OPSUMIT [Suspect]
     Active Substance: MACITENTAN
     Indication: Pulmonary arterial hypertension
     Dosage: FREQUENCY : DAILY;?
     Route: 048
     Dates: start: 201809
  2. TADALAFIL [Concomitant]
  3. REMODULIN [Concomitant]
     Active Substance: TREPROSTINIL

REACTIONS (2)
  - Chest pain [None]
  - Fatigue [None]

NARRATIVE: CASE EVENT DATE: 20240523
